FAERS Safety Report 22088082 (Version 1)
Quarter: 2023Q1

REPORT INFORMATION
  Report Type: Spontaneous
  Country: NL (occurrence: None)
  Receive Date: 20230313
  Receipt Date: 20230313
  Transmission Date: 20230417
  Serious: Yes (Other)
  Sender: FDA-Public Use
  Company Number: NL-ROCHE-3305578

PATIENT
  Sex: Female

DRUGS (2)
  1. OCREVUS [Suspect]
     Active Substance: OCRELIZUMAB
     Indication: Relapsing multiple sclerosis
     Dosage: FIRST DOSE
     Route: 065
     Dates: start: 202201
  2. OCREVUS [Suspect]
     Active Substance: OCRELIZUMAB
     Dosage: 2X300MG SECOND DOSE
     Route: 065
     Dates: start: 202209

REACTIONS (4)
  - Lymphocyte count decreased [Unknown]
  - Pruritus [Unknown]
  - Primary progressive multiple sclerosis [Unknown]
  - Erythema [Unknown]
